FAERS Safety Report 8007632-2 (Version None)
Quarter: 2011Q4

REPORT INFORMATION
  Report Type: 
  Country: None (occurrence: None)
  Receive Date: 20111227
  Receipt Date: 20111213
  Transmission Date: 20120403
  Serious: Yes (Hospitalization, Other)
  Sender: FDA-Public Use
  Company Number: JP-UCBSA-045850

PATIENT
  Age: 21 Year
  Sex: Male

DRUGS (1)
  1. XYZAL [Suspect]
     Indication: ECZEMA
     Route: 048
     Dates: start: 20111108, end: 20111108

REACTIONS (18)
  - DIARRHOEA [None]
  - BLOOD SODIUM DECREASED [None]
  - C-REACTIVE PROTEIN INCREASED [None]
  - PYREXIA [None]
  - LYMPHOCYTE COUNT DECREASED [None]
  - LOSS OF CONSCIOUSNESS [None]
  - URTICARIA [None]
  - MYCOPLASMA TEST [None]
  - PHARYNGEAL OEDEMA [None]
  - NAUSEA [None]
  - MONOCYTE COUNT DECREASED [None]
  - ANAPHYLACTIC SHOCK [None]
  - ERYTHEMA MULTIFORME [None]
  - BLOOD BILIRUBIN INCREASED [None]
  - VOMITING [None]
  - BLOOD GLUCOSE INCREASED [None]
  - WHITE BLOOD CELL COUNT INCREASED [None]
  - NEUTROPHIL COUNT INCREASED [None]
